FAERS Safety Report 13009070 (Version 8)
Quarter: 2018Q1

REPORT INFORMATION
  Report Type: Report from Study
  Country: CA (occurrence: CA)
  Receive Date: 20161208
  Receipt Date: 20180111
  Transmission Date: 20180508
  Serious: Yes (Death, Hospitalization, Other)
  Sender: FDA-Public Use
  Company Number: CA-INCYTE CORPORATION-2016IN005520

PATIENT

DRUGS (7)
  1. JAKAVI [Suspect]
     Active Substance: RUXOLITINIB
     Dosage: 10 MG, BID
     Route: 048
  2. JAKAVI [Suspect]
     Active Substance: RUXOLITINIB
     Dosage: 10 MG, BID
     Route: 048
     Dates: end: 20171208
  3. SYNTHROID [Concomitant]
     Active Substance: LEVOTHYROXINE SODIUM
     Indication: PRODUCT USED FOR UNKNOWN INDICATION
     Route: 065
  4. IRON [Concomitant]
     Active Substance: IRON
     Indication: BLOOD IRON DECREASED
     Dosage: 2 DF, QD
     Route: 065
  5. JAKAVI [Suspect]
     Active Substance: RUXOLITINIB
     Indication: MYELOFIBROSIS
     Dosage: 20 MG, BID
     Route: 048
     Dates: start: 201608, end: 20161125
  6. XARELTO [Concomitant]
     Active Substance: RIVAROXABAN
     Indication: PRODUCT USED FOR UNKNOWN INDICATION
     Dosage: UNK
     Route: 065
     Dates: end: 20161125
  7. JAKAVI [Suspect]
     Active Substance: RUXOLITINIB
     Dosage: 20 MG, QD
     Route: 048

REACTIONS (19)
  - Mouth haemorrhage [Unknown]
  - Blood iron decreased [Unknown]
  - Sleep disorder [Unknown]
  - Fatigue [Recovering/Resolving]
  - Post-traumatic stress disorder [Unknown]
  - Gingival pain [Unknown]
  - Weight decreased [Unknown]
  - Eating disorder [Unknown]
  - Anxiety [Unknown]
  - Asthenia [Unknown]
  - Platelet disorder [Unknown]
  - Drug ineffective [Unknown]
  - Second primary malignancy [Unknown]
  - Decreased appetite [Recovering/Resolving]
  - Abscess [Unknown]
  - Death [Fatal]
  - Skin cancer [Unknown]
  - Pain in extremity [Unknown]
  - Haemarthrosis [Recovered/Resolved]

NARRATIVE: CASE EVENT DATE: 20161125
